FAERS Safety Report 11503785 (Version 1)
Quarter: 2015Q3

REPORT INFORMATION
  Report Type: Spontaneous
  Country: US (occurrence: US)
  Receive Date: 20150914
  Receipt Date: 20150914
  Transmission Date: 20151125
  Serious: No
  Sender: FDA-Public Use
  Company Number: US-009507513-1509USA006091

PATIENT

DRUGS (19)
  1. CALCIUM MAGNESIUM ZINC [Concomitant]
     Active Substance: CALCIUM\MAGNESIUM\ZINC
     Dosage: TAKE BY MOUTH DAILY (333/133/5 MG)
     Route: 048
  2. DETROL LA [Concomitant]
     Active Substance: TOLTERODINE TARTRATE
     Dosage: 4 MG, QD (1 CAPSULE BY MOUTH DAILY AS NEEDED)
     Route: 048
  3. SINGULAIR [Suspect]
     Active Substance: MONTELUKAST SODIUM
     Route: 048
  4. ASPIRIN. [Concomitant]
     Active Substance: ASPIRIN
     Dosage: 81 MG, QD
     Route: 048
  5. ZYRTEC [Concomitant]
     Active Substance: CETIRIZINE HYDROCHLORIDE
     Dosage: 10 MG, QD (1 TABLET BY MOUTH DAILY)
     Route: 048
  6. PEPCID [Concomitant]
     Active Substance: FAMOTIDINE
     Dosage: 20 MG, BID (1 TABLET BY MOUTH 2 TIMES DAILY)
     Route: 048
  7. VERAMYST [Concomitant]
     Active Substance: FLUTICASONE FUROATE
     Dosage: 55 MICROGRAM, QD (2 SPARYS INTO BOTH NOSTRILS DAILY)
     Route: 045
  8. VIAGRA [Concomitant]
     Active Substance: SILDENAFIL CITRATE
     Indication: ERECTILE DYSFUNCTION
     Dosage: 100 MG, QD (1 TABLET BY MOUTH DAILY AS NEEDED)
     Route: 048
  9. NORVASC [Concomitant]
     Active Substance: AMLODIPINE BESYLATE
     Dosage: 10 MG, QD (1 TABLET DAILY BY MOUTH)
  10. COLACE [Concomitant]
     Active Substance: DOCUSATE SODIUM
     Dosage: 100 MG, QD
     Route: 048
  11. ADVAIR HFA [Concomitant]
     Active Substance: FLUTICASONE PROPIONATE\SALMETEROL XINAFOATE
     Dosage: 1 DF, BID (1 PUFF 500-50 MICROGRAM INTO THE LUNGS EVERY 12 HOURS)
     Route: 055
  12. PSYLLIUM HUSK [Concomitant]
     Active Substance: PSYLLIUM HUSK
     Dosage: 0.52 G, QD (1 CAPSULE BY MOUTH, DAILY)
     Route: 048
  13. ZESTRIL [Concomitant]
     Active Substance: LISINOPRIL
     Dosage: 10 MG, QD (1 TABLET BY MOUTH DAILY)
     Route: 048
  14. OMEGA-3 ACIDS [Concomitant]
     Active Substance: OMEGA-3 FATTY ACIDS
     Dosage: 1 DF, QD (1 CAPSULE BY MOUTH DAILY)
     Route: 048
  15. WELLBUTRIN XL [Concomitant]
     Active Substance: BUPROPION HYDROCHLORIDE
     Dosage: 150 MG, QAM (1 TABLET BY MOUTH EVERY MORNING)
     Route: 048
  16. CHOLECALCIFEROL [Concomitant]
     Active Substance: CHOLECALCIFEROL
     Dosage: TAKE 1000 UNITS BY MOUTH (FREQUENCY NOT REPORTED)
     Route: 048
  17. DOCUSATE SODIUM. [Concomitant]
     Active Substance: DOCUSATE SODIUM
     Dosage: 100 MG, QD
     Route: 048
  18. PRINIVIL [Concomitant]
     Active Substance: LISINOPRIL
     Dosage: 10 MG, QD (1 TABLET BY MOUTH DAILY)
     Route: 048
  19. VITAMINS (UNSPECIFIED) [Concomitant]
     Active Substance: VITAMINS
     Dosage: TAKE BY MOUTH DAILY
     Route: 048

REACTIONS (2)
  - Anxiety [Unknown]
  - Drug hypersensitivity [Unknown]
